FAERS Safety Report 5232334-5 (Version None)
Quarter: 2007Q1

REPORT INFORMATION
  Report Type: 
  Country: None (occurrence: None)
  Receive Date: 20070207
  Receipt Date: 20070125
  Transmission Date: 20070707
  Serious: Yes (Other)
  Sender: FDA-Public Use
  Company Number: FRWYE314324JAN07

PATIENT
  Sex: Female

DRUGS (4)
  1. ENBREL [Suspect]
     Indication: DRUG USE FOR UNKNOWN INDICATION
     Dosage: UNKNOWN
     Route: 058
  2. REMICADE [Suspect]
     Dosage: UNKNOWN
  3. HUMIRA [Suspect]
     Dosage: UNKNOWN
  4. KINERET [Suspect]
     Dosage: UNKNOWN

REACTIONS (1)
  - LYMPHOMA [None]
